FAERS Safety Report 9263787 (Version 2)
Quarter: 2013Q2

REPORT INFORMATION
  Report Type: Spontaneous
  Country: US (occurrence: US)
  Receive Date: 20130430
  Receipt Date: 20130610
  Transmission Date: 20140414
  Serious: Yes (Death, Hospitalization)
  Sender: FDA-Public Use
  Company Number: US-ASTRAZENECA-2013SE28671

PATIENT
  Age: 71 Year
  Sex: Female
  Weight: 63.5 kg

DRUGS (5)
  1. SEROQUEL [Suspect]
     Dosage: 1000 MG SEROQUEL GIVEN ACCIDENTALLY
     Route: 048
  2. LASIX [Concomitant]
     Route: 042
  3. COREG [Concomitant]
  4. DIGOXIN [Concomitant]
     Indication: HYPERTENSION
  5. POTASSIUM [Concomitant]

REACTIONS (8)
  - Gait disturbance [Unknown]
  - Posture abnormal [Unknown]
  - Activities of daily living impaired [Unknown]
  - Cognitive disorder [Unknown]
  - Speech disorder [Unknown]
  - Thought blocking [Unknown]
  - Dysarthria [Unknown]
  - Incorrect dose administered [Fatal]
